FAERS Safety Report 9926614 (Version 2)
Quarter: 2014Q1

REPORT INFORMATION
  Report Type: Spontaneous
  Country: US (occurrence: US)
  Receive Date: 20140226
  Receipt Date: 20140305
  Transmission Date: 20141002
  Serious: Yes (Other)
  Sender: FDA-Public Use
  Company Number: US-AMGEN-USASP2013075713

PATIENT
  Age: 49 Year
  Sex: Male

DRUGS (2)
  1. ENBREL [Suspect]
     Indication: PSORIATIC ARTHROPATHY
     Dosage: 50 MG, QWK
     Route: 058
  2. ENBREL [Suspect]
     Indication: RHEUMATOID ARTHRITIS

REACTIONS (6)
  - Hepatic steatosis [Unknown]
  - Meniscus injury [Recovered/Resolved]
  - Laboratory test abnormal [Unknown]
  - Hepatic enzyme abnormal [Unknown]
  - Arthralgia [Unknown]
  - Mobility decreased [Unknown]
